FAERS Safety Report 17992018 (Version 2)
Quarter: 2020Q3

REPORT INFORMATION
  Report Type: Report from Study
  Country: GB (occurrence: GB)
  Receive Date: 20200708
  Receipt Date: 20200719
  Transmission Date: 20201103
  Serious: Yes (Other)
  Sender: FDA-Public Use
  Company Number: GB-EMD SERONO-9170919

PATIENT
  Age: 26 Year
  Sex: Female

DRUGS (2)
  1. REBIF [Suspect]
     Active Substance: INTERFERON BETA-1A
     Dosage: 12 MIU
     Route: 058
     Dates: start: 2020
  2. REBIF [Suspect]
     Active Substance: INTERFERON BETA-1A
     Indication: MULTIPLE SCLEROSIS
     Dosage: MULTIDOSE CARTRIDGE
     Route: 058
     Dates: start: 20200623, end: 2020

REACTIONS (7)
  - Dizziness [Unknown]
  - Injection site bruising [Unknown]
  - Injection site erythema [Unknown]
  - Nervousness [Unknown]
  - Loss of consciousness [Unknown]
  - Menstrual disorder [Unknown]
  - Blood pressure decreased [Unknown]

NARRATIVE: CASE EVENT DATE: 2020
